FAERS Safety Report 6099366-9 (Version None)
Quarter: 2009Q1

REPORT INFORMATION
  Report Type: 
  Country: None (occurrence: None)
  Receive Date: 20090226
  Receipt Date: 20090226
  Transmission Date: 20090719
  Serious: Yes (Hospitalization)
  Sender: FDA-Public Use
  Company Number: None

PATIENT
  Age: 64 Year
  Sex: Female

DRUGS (1)
  1. DIGOXIN [Suspect]
     Indication: CARDIAC FAILURE CONGESTIVE
     Dosage: 0.125 MG EVERYDAY PO
     Route: 048
     Dates: start: 20080804, end: 20090218

REACTIONS (4)
  - BALANCE DISORDER [None]
  - DIZZINESS [None]
  - THERAPEUTIC AGENT TOXICITY [None]
  - TREMOR [None]
